FAERS Safety Report 4915723-5 (Version None)
Quarter: 2006Q1

REPORT INFORMATION
  Report Type: 
  Country: None (occurrence: None)
  Receive Date: 20060217
  Receipt Date: 20060130
  Transmission Date: 20060701
  Serious: Yes (Other)
  Sender: FDA-Public Use
  Company Number: PHBS2006BR01653

PATIENT
  Age: 39 Year
  Sex: Male

DRUGS (3)
  1. TEGRETOL [Suspect]
     Indication: BIPOLAR DISORDER
     Dosage: 400 MG/DAY
     Route: 048
     Dates: start: 20060121
  2. TEGRETOL [Suspect]
     Dosage: 800 MG/DAY
     Route: 048
  3. RISPERIDONE [Concomitant]
     Dosage: 3 MG/DAY
     Route: 048
     Dates: start: 20060101

REACTIONS (4)
  - DYSPHAGIA [None]
  - DYSPNOEA [None]
  - PHARYNGEAL OEDEMA [None]
  - SOMNOLENCE [None]
